FAERS Safety Report 7287330-3 (Version None)
Quarter: 2011Q1

REPORT INFORMATION
  Report Type: 
  Country: None (occurrence: None)
  Receive Date: 20110211
  Receipt Date: 20110131
  Transmission Date: 20110831
  Serious: Yes (Other)
  Sender: FDA-Public Use
  Company Number: PT-JNJFOC-20110200970

PATIENT
  Age: 15 Year
  Sex: Female

DRUGS (1)
  1. REMICADE [Suspect]
     Indication: COLITIS
     Dosage: TOTAL 2 INFUSIONS
     Route: 042

REACTIONS (4)
  - DRUG RESISTANCE [None]
  - POUCHITIS [None]
  - MALNUTRITION [None]
  - INFECTION [None]
